FAERS Safety Report 8272751-2 (Version None)
Quarter: 2012Q2

REPORT INFORMATION
  Report Type: 
  Country: None (occurrence: None)
  Receive Date: 20120411
  Receipt Date: 20120330
  Transmission Date: 20120825
  Serious: Yes (Other)
  Sender: FDA-Public Use
  Company Number: US-BRISTOL-MYERS SQUIBB COMPANY-16492811

PATIENT
  Age: 85 Year
  Sex: Male
  Weight: 61 kg

DRUGS (19)
  1. RECLAST [Concomitant]
  2. PRILOSEC [Concomitant]
  3. AZILECT [Concomitant]
  4. GLIPIZIDE [Concomitant]
  5. ASPIRIN [Concomitant]
  6. CARBIDOPA AND LEVODOPA [Concomitant]
     Dosage: CARBIDOPA/LEVODOPA 50-200 MYLA TID
  7. CITRICAL [Concomitant]
  8. HYPOTEARS DDPF [Concomitant]
  9. PENTOXIFYLLINE [Concomitant]
  10. LIPITOR [Concomitant]
  11. MELOXICAM [Concomitant]
  12. REQUIP [Concomitant]
  13. METOPROLOL TARTRATE [Concomitant]
  14. ERBITUX [Suspect]
     Indication: HEAD AND NECK CANCER
     Dosage: TREATMENT DATES 08MAR12, 15MAR12, 29MAR12
     Dates: start: 20120301
  15. JANUVIA [Concomitant]
  16. PRANDIN [Concomitant]
  17. FENTANYL CITRATE [Concomitant]
     Route: 062
  18. FOLBIC [Concomitant]
  19. SYNTHROID [Concomitant]

REACTIONS (7)
  - ORAL PAIN [None]
  - TONGUE HAEMORRHAGE [None]
  - BLOOD MAGNESIUM DECREASED [None]
  - FALL [None]
  - DISORIENTATION [None]
  - BLOOD PRESSURE DIASTOLIC DECREASED [None]
  - WEIGHT DECREASED [None]
